FAERS Safety Report 11752155 (Version 1)
Quarter: 2015Q4

REPORT INFORMATION
  Report Type: Report from Study
  Country: US (occurrence: US)
  Receive Date: 20151118
  Receipt Date: 20151118
  Transmission Date: 20160304
  Serious: No
  Sender: FDA-Public Use
  Company Number: US-CELGENEUS-USA-2015101426

PATIENT
  Sex: Male

DRUGS (3)
  1. DEXAMETHASONE. [Concomitant]
     Active Substance: DEXAMETHASONE
     Indication: PLASMA CELL MYELOMA
     Route: 065
  2. CYTOXAN [Concomitant]
     Active Substance: CYCLOPHOSPHAMIDE
     Indication: PLASMA CELL MYELOMA
     Route: 065
  3. THALOMID [Suspect]
     Active Substance: THALIDOMIDE
     Indication: PLASMA CELL MYELOMA
     Route: 048

REACTIONS (12)
  - Asthenia [Unknown]
  - Insomnia [Unknown]
  - Monoclonal immunoglobulin present [Unknown]
  - Impaired work ability [Unknown]
  - Emotional disorder [Unknown]
  - Blood calcium abnormal [Recovering/Resolving]
  - Fatigue [Unknown]
  - Spondylitis [Unknown]
  - Blood iron abnormal [Recovering/Resolving]
  - Renal impairment [Recovering/Resolving]
  - Tooth disorder [Unknown]
  - Bone disorder [Unknown]
